FAERS Safety Report 5199760-4 (Version None)
Quarter: 2007Q1

REPORT INFORMATION
  Report Type: 
  Country: None (occurrence: None)
  Receive Date: 20070105
  Receipt Date: 20060407
  Transmission Date: 20070707
  Serious: No
  Sender: FDA-Public Use
  Company Number: US-GLAXOSMITHKLINE-A0600942A

PATIENT
  Sex: Female

DRUGS (5)
  1. TAGAMET [Suspect]
     Indication: GASTRITIS
     Dosage: 400MG VARIABLE DOSE
     Route: 048
  2. CIMETIDINE HCL [Suspect]
     Indication: GASTRITIS
     Dosage: 400MG VARIABLE DOSE
     Route: 048
  3. WATER PILL [Concomitant]
  4. VITAMINS [Concomitant]
  5. LAXATIVES [Concomitant]

REACTIONS (2)
  - DRUG INEFFECTIVE [None]
  - THERAPEUTIC RESPONSE UNEXPECTED [None]
